FAERS Safety Report 7635527-2 (Version None)
Quarter: 2011Q3

REPORT INFORMATION
  Report Type: 
  Country: None (occurrence: None)
  Receive Date: 20110726
  Receipt Date: 20110719
  Transmission Date: 20111222
  Serious: Yes (Other)
  Sender: FDA-Public Use
  Company Number: US-BAYER-2011-016482

PATIENT
  Age: 26 Year
  Sex: Female
  Weight: 84.807 kg

DRUGS (1)
  1. MIRENA [Suspect]
     Indication: CONTRACEPTION
     Dosage: 20 ?G, CONT
     Dates: start: 20110131, end: 20110201

REACTIONS (2)
  - DEVICE DISLOCATION [None]
  - PAIN [None]
